FAERS Safety Report 19823758 (Version 5)
Quarter: 2021Q4

REPORT INFORMATION
  Report Type: Report from Study
  Country: DE (occurrence: DE)
  Receive Date: 20210913
  Receipt Date: 20211207
  Transmission Date: 20220303
  Serious: Yes (Death, Life-Threatening, Hospitalization, Other)
  Sender: FDA-Public Use
  Company Number: DE-CELGENE-DEU-20210809393

PATIENT
  Age: 62 Year
  Sex: Male
  Weight: 80 kg

DRUGS (81)
  1. REVLIMID [Suspect]
     Active Substance: LENALIDOMIDE
     Indication: Plasma cell myeloma
     Route: 048
     Dates: start: 20190401, end: 20191013
  2. REVLIMID [Suspect]
     Active Substance: LENALIDOMIDE
     Route: 048
     Dates: start: 20200217, end: 20200306
  3. REVLIMID [Suspect]
     Active Substance: LENALIDOMIDE
     Route: 048
     Dates: start: 20200316, end: 20200531
  4. REVLIMID [Suspect]
     Active Substance: LENALIDOMIDE
     Route: 048
     Dates: start: 20200615, end: 20201011
  5. REVLIMID [Suspect]
     Active Substance: LENALIDOMIDE
     Route: 048
     Dates: start: 20201012, end: 20210328
  6. REVLIMID [Suspect]
     Active Substance: LENALIDOMIDE
     Route: 048
     Dates: start: 20210520, end: 20210810
  7. CARFILZOMIB [Suspect]
     Active Substance: CARFILZOMIB
     Indication: Plasma cell myeloma
     Route: 041
     Dates: start: 20190401, end: 20190402
  8. CARFILZOMIB [Suspect]
     Active Substance: CARFILZOMIB
     Route: 041
     Dates: start: 20190408, end: 20210806
  9. CARFILZOMIB [Suspect]
     Active Substance: CARFILZOMIB
     Route: 041
     Dates: start: 20190819, end: 20190902
  10. CARFILZOMIB [Suspect]
     Active Substance: CARFILZOMIB
     Route: 041
     Dates: start: 20190923, end: 20191001
  11. CARFILZOMIB [Suspect]
     Active Substance: CARFILZOMIB
     Route: 041
     Dates: start: 20200207, end: 20200526
  12. ELOTUZUMAB [Suspect]
     Active Substance: ELOTUZUMAB
     Indication: Plasma cell myeloma
     Route: 041
     Dates: start: 20190401, end: 20190805
  13. ELOTUZUMAB [Suspect]
     Active Substance: ELOTUZUMAB
     Route: 041
     Dates: start: 20190819, end: 20191001
  14. ELOTUZUMAB [Suspect]
     Active Substance: ELOTUZUMAB
     Route: 041
     Dates: start: 20200217, end: 20200526
  15. ELOTUZUMAB [Suspect]
     Active Substance: ELOTUZUMAB
     Route: 041
     Dates: start: 20200615, end: 20210722
  16. DEXAMETHASONE [Suspect]
     Active Substance: DEXAMETHASONE
     Indication: Plasma cell myeloma
     Route: 048
     Dates: start: 20190401, end: 20210722
  17. DEXAMETHASONE [Suspect]
     Active Substance: DEXAMETHASONE
     Dosage: 28 MILLIGRAM
     Route: 048
     Dates: start: 20190401, end: 20210722
  18. DEXAMETHASONE [Suspect]
     Active Substance: DEXAMETHASONE
     Route: 048
     Dates: start: 20190729, end: 20191014
  19. DEXAMETHASONE [Suspect]
     Active Substance: DEXAMETHASONE
     Route: 048
     Dates: start: 20200224, end: 20200601
  20. METAMIZOLE [Concomitant]
     Active Substance: METAMIZOLE
     Indication: Back pain
     Dosage: 40 GGT PRN
     Route: 048
     Dates: start: 20180408, end: 20210830
  21. METAMIZOLE [Concomitant]
     Active Substance: METAMIZOLE
     Dosage: 1000 MG
     Route: 048
     Dates: start: 20210912, end: 20210912
  22. NALOXONE HYDROCHLORIDE\TILIDINE HYDROCHLORIDE [Concomitant]
     Active Substance: NALOXONE HYDROCHLORIDE\TILIDINE HYDROCHLORIDE
     Indication: Back pain
     Dosage: 200-0-100 MG
     Route: 048
     Dates: start: 20190409, end: 20211008
  23. POLYETHYLENE GLYCOLS [Concomitant]
     Active Substance: POLYETHYLENE GLYCOLS
     Indication: Constipation prophylaxis
     Dosage: 1 BT. PRN
     Route: 048
     Dates: start: 20191205, end: 20210830
  24. ASPIRIN [Concomitant]
     Active Substance: ASPIRIN
     Indication: Constipation prophylaxis
     Dosage: 100 MILLIGRAM
     Route: 048
     Dates: start: 20200224, end: 20210816
  25. ASPIRIN [Concomitant]
     Active Substance: ASPIRIN
     Indication: Thrombosis prophylaxis
     Dosage: 1000 MILLIGRAM
     Route: 048
     Dates: start: 20210830, end: 20210830
  26. PREGABALIN [Concomitant]
     Active Substance: PREGABALIN
     Indication: Back pain
     Dosage: 25 MILLIGRAM
     Route: 048
     Dates: start: 20200316, end: 20211109
  27. DIMETHINDENE [Concomitant]
     Active Substance: DIMETHINDENE
     Indication: Product used for unknown indication
     Dosage: 4 MILLIGRAM
     Route: 041
     Dates: start: 20200615, end: 20210722
  28. ACETAMINOPHEN [Concomitant]
     Active Substance: ACETAMINOPHEN
     Indication: Pyrexia
     Dosage: 1000 MILLIGRAM
     Route: 048
     Dates: start: 20200615, end: 20200722
  29. ACETAMINOPHEN [Concomitant]
     Active Substance: ACETAMINOPHEN
     Dosage: 1000 MG PRN
     Route: 048
     Dates: start: 20210831
  30. ACETAMINOPHEN [Concomitant]
     Active Substance: ACETAMINOPHEN
     Dosage: 1000 MG PRN
     Route: 048
     Dates: start: 20210903, end: 20210903
  31. RANITIDINE [Concomitant]
     Active Substance: RANITIDINE
     Indication: Product used for unknown indication
     Dosage: 50 MILLIGRAM
     Route: 041
     Dates: start: 20200615, end: 20200722
  32. ACYCLOVIR [Concomitant]
     Active Substance: ACYCLOVIR
     Indication: Neutropenia
     Dosage: 400 MILLIGRAM
     Route: 048
     Dates: start: 20210810, end: 20210816
  33. ACYCLOVIR [Concomitant]
     Active Substance: ACYCLOVIR
     Indication: Infection prophylaxis
     Dosage: 800 MILLIGRAM
     Route: 048
     Dates: start: 20210901, end: 20211011
  34. CIPROFLOXACIN [Concomitant]
     Active Substance: CIPROFLOXACIN
     Indication: Neutropenia
     Dosage: 50 MILLIGRAM
     Route: 048
     Dates: start: 20210810, end: 20210830
  35. CIPROFLOXACIN [Concomitant]
     Active Substance: CIPROFLOXACIN
     Indication: Infection prophylaxis
     Dosage: 500 MILLIGRAM
     Route: 048
     Dates: start: 20210901, end: 20210912
  36. FILGRASTIM [Concomitant]
     Active Substance: FILGRASTIM
     Indication: Neutropenia
     Dosage: 48 MBO IE 00
     Route: 058
     Dates: start: 20210813, end: 20210813
  37. FOLISURE [Concomitant]
     Indication: Prophylaxis
     Dosage: 5 MILLIGRAM
     Route: 048
     Dates: start: 20210813, end: 20211110
  38. VITAMIN B6 [Concomitant]
     Active Substance: PYRIDOXINE HYDROCHLORIDE
     Indication: Vitamin B6 deficiency
     Dosage: 20 MILLIGRAM
     Route: 048
     Dates: start: 20210816, end: 20210830
  39. VITAMIN B6 [Concomitant]
     Active Substance: PYRIDOXINE HYDROCHLORIDE
     Dosage: 142.8571 IU (INTERNATIONAL UNIT)
     Route: 048
     Dates: start: 20210901, end: 20211112
  40. JONOSTERIL [Concomitant]
     Indication: Pancytopenia
     Dosage: 500 ML OO
     Route: 041
     Dates: start: 20210820, end: 20210820
  41. JONOSTERIL [Concomitant]
     Dosage: 1000 ML OO
     Route: 041
     Dates: start: 20210831, end: 20210831
  42. DIFLUCAN [Concomitant]
     Active Substance: FLUCONAZOLE
     Indication: Pancytopenia
     Dosage: 500 ML OO
     Route: 048
     Dates: start: 20210823, end: 20210830
  43. FACTOR XIII CONCENTRATE (HUMAN) [Concomitant]
     Active Substance: FACTOR XIII CONCENTRATE (HUMAN)
     Indication: Factor XIII deficiency
     Route: 041
     Dates: start: 20210826, end: 20210826
  44. FACTOR XIII CONCENTRATE (HUMAN) [Concomitant]
     Active Substance: FACTOR XIII CONCENTRATE (HUMAN)
     Route: 041
     Dates: start: 20210831, end: 20210831
  45. FACTOR XIII CONCENTRATE (HUMAN) [Concomitant]
     Active Substance: FACTOR XIII CONCENTRATE (HUMAN)
     Route: 041
     Dates: start: 20211104, end: 20211105
  46. FACTOR XIII CONCENTRATE (HUMAN) [Concomitant]
     Active Substance: FACTOR XIII CONCENTRATE (HUMAN)
     Route: 041
     Dates: start: 20211104, end: 20211105
  47. FACTOR XIII CONCENTRATE (HUMAN) [Concomitant]
     Active Substance: FACTOR XIII CONCENTRATE (HUMAN)
     Route: 041
     Dates: start: 20211107, end: 20211107
  48. FACTOR XIII CONCENTRATE (HUMAN) [Concomitant]
     Active Substance: FACTOR XIII CONCENTRATE (HUMAN)
     Route: 041
     Dates: start: 20211108, end: 20211108
  49. FACTOR XIII CONCENTRATE (HUMAN) [Concomitant]
     Active Substance: FACTOR XIII CONCENTRATE (HUMAN)
     Route: 041
     Dates: start: 20211111, end: 20211111
  50. FACTOR XIII CONCENTRATE (HUMAN) [Concomitant]
     Active Substance: FACTOR XIII CONCENTRATE (HUMAN)
     Route: 041
     Dates: start: 20211112, end: 20211112
  51. TINZAPARIN [Concomitant]
     Active Substance: TINZAPARIN
     Indication: Thrombosis prophylaxis
     Dosage: 3500 IU (INTERNATIONAL UNIT)
     Route: 058
     Dates: start: 20210830, end: 20210830
  52. CYTARABINE [Concomitant]
     Active Substance: CYTARABINE
     Indication: Acute myeloid leukaemia
     Dosage: 100 MG QD D1-3
     Route: 041
     Dates: start: 20210831, end: 20210902
  53. CYTARABINE [Concomitant]
     Active Substance: CYTARABINE
     Dosage: 100 MG QD D1-3
     Route: 041
     Dates: start: 20210904, end: 20210910
  54. CYTARABINE [Concomitant]
     Active Substance: CYTARABINE
     Dosage: 100 MG QD D1-3
     Route: 041
     Dates: start: 20211102, end: 20211104
  55. GRANISETRON [Concomitant]
     Active Substance: GRANISETRON
     Indication: Prophylaxis of nausea and vomiting
     Dosage: 1 MG QD D 1-3
     Route: 041
     Dates: start: 20210831, end: 20210902
  56. GRANISETRON [Concomitant]
     Active Substance: GRANISETRON
     Dosage: 3 MILLIGRAM
     Route: 041
     Dates: start: 20210904, end: 20210911
  57. SODIUM CHLORIDE [Concomitant]
     Active Substance: SODIUM CHLORIDE
     Indication: Fluid replacement
     Dosage: 1000 MILLIGRAM
     Route: 041
     Dates: start: 20210831, end: 20210902
  58. KONAKION [Concomitant]
     Active Substance: PHYTONADIONE
     Indication: Vitamin K deficiency
     Dosage: 10 MG 00
     Route: 041
     Dates: start: 20210831, end: 20210831
  59. PIPERACILLIN SODIUM\TAZOBACTAM SODIUM [Concomitant]
     Active Substance: PIPERACILLIN SODIUM\TAZOBACTAM SODIUM
     Indication: Pyrexia
     Dosage: 4.5 GRAM
     Route: 041
     Dates: start: 20210831
  60. PIPERACILLIN SODIUM\TAZOBACTAM SODIUM [Concomitant]
     Active Substance: PIPERACILLIN SODIUM\TAZOBACTAM SODIUM
     Dosage: 4.5 GRAM
     Route: 041
     Dates: start: 20210912, end: 20210927
  61. CALCIUM [Concomitant]
     Active Substance: CALCIUM
     Indication: Prophylaxis
     Dosage: 500 MILLIGRAM
     Route: 048
     Dates: start: 20210831, end: 20210913
  62. BLEMAREN [Concomitant]
     Indication: Renal failure
     Dosage: 1 BTA
     Route: 048
     Dates: start: 20210901, end: 20210913
  63. PYRIDOXINE [Concomitant]
     Active Substance: PYRIDOXINE
     Indication: Vitamin B6 deficiency
     Dosage: 20 MILLIGRAM
     Route: 048
     Dates: start: 20210901
  64. Natrium hydrogen carbonate [Concomitant]
     Indication: Drug dependence
     Dosage: 8, 4GRAM
     Route: 041
     Dates: start: 20210902, end: 20210903
  65. MITOXANTRONE [Concomitant]
     Active Substance: MITOXANTRONE HYDROCHLORIDE
     Indication: Acute myeloid leukaemia
     Dosage: 20 MILLIGRAM
     Route: 065
     Dates: start: 20210904, end: 20210906
  66. COTRIMOXAZOLE [Concomitant]
     Active Substance: SULFAMETHOXAZOLE\TRIMETHOPRIM
     Indication: Antifungal prophylaxis
     Dosage: 1920 MILLIGRAM
     Route: 048
     Dates: start: 20210906, end: 20211011
  67. POSACONAZOLE [Concomitant]
     Active Substance: POSACONAZOLE
     Indication: Antifungal prophylaxis
     Dosage: 300 MILLIGRAM
     Route: 048
     Dates: start: 20210906, end: 20211109
  68. TORSEMIDE [Concomitant]
     Active Substance: TORSEMIDE
     Indication: Prophylaxis
     Dosage: 300 MILLIGRAM
     Route: 048
     Dates: start: 20210906, end: 20210913
  69. PREDNISOLONE [Concomitant]
     Active Substance: PREDNISOLONE
     Indication: Anaemia
     Dosage: 50 MILLIGRAM
     Route: 041
     Dates: start: 20210907, end: 20210909
  70. Metamizol-natrium [Concomitant]
     Indication: Erysipelas
     Dosage: 1000 MILLIGRAM
     Route: 048
     Dates: start: 20210912, end: 20210912
  71. POTASSIUM CHLORIDE [Concomitant]
     Active Substance: POTASSIUM CHLORIDE
     Indication: Prophylaxis
     Dosage: 8 MMOL
     Route: 048
     Dates: start: 20210920, end: 20211004
  72. LINEZOLID [Concomitant]
     Active Substance: LINEZOLID
     Indication: C-reactive protein increased
     Dosage: 1200 MILLIGRAM
     Route: 048
     Dates: start: 20210920, end: 20210930
  73. HYDROXYUREA [Concomitant]
     Active Substance: HYDROXYUREA
     Indication: Acute myeloid leukaemia
     Dosage: 1000 MILLIGRAM
     Route: 048
     Dates: start: 20211104, end: 20211106
  74. HYDROXYUREA [Concomitant]
     Active Substance: HYDROXYUREA
     Dosage: 2000 MILLIGRAM
     Route: 048
     Dates: start: 20211107, end: 20211108
  75. HYDROXYUREA [Concomitant]
     Active Substance: HYDROXYUREA
     Dosage: 2000 MILLIGRAM
     Route: 048
     Dates: start: 20211109, end: 20211112
  76. BERIPLEX HS [Concomitant]
     Active Substance: COAGULATION FACTOR IX HUMAN\COAGULATION FACTOR VII HUMAN\COAGULATION FACTOR X HUMAN\PROTEIN C\PROTEI
     Indication: Acute myeloid leukaemia
     Dosage: 1000 MILLIGRAM
     Route: 041
     Dates: start: 20211108, end: 20211108
  77. OCTAPLEX [Concomitant]
     Active Substance: COAGULATION FACTOR IX HUMAN\COAGULATION FACTOR VII HUMAN\COAGULATION FACTOR X HUMAN\PROTEIN C\PROTEI
     Indication: Acute myeloid leukaemia
     Dosage: 40 MILLILITER
     Route: 041
     Dates: start: 20211112, end: 20211112
  78. OCTAPLEX [Concomitant]
     Active Substance: COAGULATION FACTOR IX HUMAN\COAGULATION FACTOR VII HUMAN\COAGULATION FACTOR X HUMAN\PROTEIN C\PROTEI
     Indication: Factor XIII deficiency
  79. FOLIC ACID [Concomitant]
     Active Substance: FOLIC ACID
     Indication: Folate deficiency
     Dosage: 5 MG
     Route: 048
     Dates: start: 20210813, end: 20211110
  80. VITAMIN B12 [Concomitant]
     Active Substance: CYANOCOBALAMIN
     Indication: Vitamin B12 deficiency
     Dosage: 100 IU
     Route: 058
     Dates: start: 20210813, end: 20210816
  81. HUMAN PLASMA [Concomitant]
     Active Substance: HUMAN PLASMA
     Indication: Factor XIII deficiency
     Route: 041
     Dates: start: 20211109, end: 20211109

REACTIONS (1)
  - Acute myeloid leukaemia [Fatal]

NARRATIVE: CASE EVENT DATE: 20210820
